FAERS Safety Report 8005137-6 (Version None)
Quarter: 2011Q4

REPORT INFORMATION
  Report Type: 
  Country: None (occurrence: None)
  Receive Date: 20111223
  Receipt Date: 20111213
  Transmission Date: 20120403
  Serious: Yes (Hospitalization)
  Sender: FDA-Public Use
  Company Number: PHHY2011FR103739

PATIENT
  Sex: Male

DRUGS (18)
  1. PERINDOPRIL ERBUMINE [Suspect]
     Indication: HYPERTENSION
     Dosage: 0.5 DF IN THE MORNING
     Route: 048
  2. ASPIRIN [Concomitant]
     Dosage: 1 DF AT MIDDAY
  3. LORAZEPAM [Suspect]
     Indication: ANXIETY
     Dosage: 1 DF IN TH EVENING
     Route: 048
  4. RISPERDAL [Suspect]
     Indication: ABNORMAL BEHAVIOUR
     Dosage: 0.25 DF, BID
     Dates: start: 20101109, end: 20101227
  5. ASPIRIN [Concomitant]
     Dosage: 1 DF AT MIDDAY
  6. FONZYLANE [Concomitant]
     Dosage: 1 DF, BID
  7. ACETAMINOPHEN [Concomitant]
     Dosage: 1 DF, TID PER DAY AS NEEDED
  8. POLYETHYLENE GLYCOL [Concomitant]
     Dosage: 2 DF IN THE MORNING
  9. TEGRETOL [Suspect]
     Indication: EPILEPSY
     Dosage: 1 DF, BID
     Route: 048
  10. LEVOFLOXACIN [Concomitant]
     Dosage: 1 DF, BID
     Dates: end: 20110112
  11. PRAVASTATIN [Suspect]
     Indication: HYPERCHOLESTEROLAEMIA
     Dosage: 1 DF (DAILY)
     Route: 048
  12. PLAVIX [Concomitant]
     Dosage: 1 DF AT MIDDAY
  13. ALFUZOSIN HCL [Concomitant]
     Dosage: 1 DF IN  EVENING
  14. ROCEPHIN [Concomitant]
     Dosage: 1 DF DAILY
     Route: 058
     Dates: end: 20110112
  15. MEMANTINE HYDROCHLORIDE [Suspect]
     Indication: DEMENTIA ALZHEIMER'S TYPE
     Dosage: 1 DF DAILY
     Route: 048
  16. FLAGYL [Concomitant]
     Dosage: 1 DF, TID
     Dates: end: 20110112
  17. ESOMEPRAZOLE MAGNESIUM [Concomitant]
     Dosage: 1 DF IN THE EVENING
  18. POTASSIUM CHLORIDE [Concomitant]
     Dosage: 1 DF, BID

REACTIONS (12)
  - FALL [None]
  - HYPERNATRAEMIA [None]
  - MENINGISM [None]
  - MIOSIS [None]
  - PHOTOPHOBIA [None]
  - HYPOALBUMINAEMIA [None]
  - DEHYDRATION [None]
  - MUSCULOSKELETAL STIFFNESS [None]
  - SOMNOLENCE [None]
  - CRANIOCEREBRAL INJURY [None]
  - AGITATION [None]
  - HYPERTHERMIA [None]
